FAERS Safety Report 8894982 (Version 1)
Quarter: 2012Q4

REPORT INFORMATION
  Report Type: 
  Country: US (occurrence: US)
  Receive Date: 20121108
  Receipt Date: 20121108
  Transmission Date: 20130627
  Serious: Yes (Hospitalization, Disabling)
  Sender: FDA-Public Use
  Company Number: PHEH2012US021189

PATIENT
  Age: 71 Year
  Sex: Female

DRUGS (7)
  1. GLEEVEC [Suspect]
     Indication: CHRONIC MYELOID LEUKAEMIA
     Dosage: 400 mg daily
     Route: 048
     Dates: start: 2009
  2. CARVEDILOL [Concomitant]
  3. SIMVASTATIN [Concomitant]
  4. PRADAXA [Concomitant]
  5. ASPIRIN [Concomitant]
  6. FOLIC ACID [Concomitant]
  7. NEXIUM [Concomitant]

REACTIONS (3)
  - Oesophageal stenosis [Unknown]
  - Chest pain [Recovered/Resolved]
  - Rash [Unknown]
